FAERS Safety Report 16801663 (Version 4)
Quarter: 2021Q3

REPORT INFORMATION
  Report Type: Spontaneous
  Country: US (occurrence: US)
  Receive Date: 20190912
  Receipt Date: 20210927
  Transmission Date: 20211014
  Serious: No
  Sender: FDA-Public Use
  Company Number: US-PFIZER INC-2019396081

PATIENT
  Age: 52 Year
  Sex: Female

DRUGS (4)
  1. LYRICA [Suspect]
     Active Substance: PREGABALIN
     Dosage: UNK, 4X/DAY (AS NEEDED)
  2. LYRICA [Suspect]
     Active Substance: PREGABALIN
     Dosage: 100 MG, THREE TIMES A DAY
  3. LYRICA [Suspect]
     Active Substance: PREGABALIN
     Dosage: 100 MG
  4. LYRICA [Suspect]
     Active Substance: PREGABALIN
     Dosage: 200 MG, THREE TIMES A DAY

REACTIONS (6)
  - Intentional product use issue [Unknown]
  - Nausea [Unknown]
  - Product prescribing error [Unknown]
  - Oral pain [Unknown]
  - Pain [Unknown]
  - Malaise [Unknown]
